FAERS Safety Report 14319720 (Version 1)
Quarter: 2017Q4

REPORT INFORMATION
  Report Type: Spontaneous
  Country: FR (occurrence: FR)
  Receive Date: 20171222
  Receipt Date: 20171222
  Transmission Date: 20180321
  Serious: Yes (Death)
  Sender: FDA-Public Use
  Company Number: FR-PFIZER INC-2017539227

PATIENT
  Age: 45 Year
  Sex: Female

DRUGS (2)
  1. VINCRISTINE SULFATE. [Suspect]
     Active Substance: VINCRISTINE SULFATE
     Indication: UTERINE LEIOMYOSARCOMA
     Dosage: UNK, CYCLIC
  2. ACTINOMYCIN D [Suspect]
     Active Substance: DACTINOMYCIN
     Indication: UTERINE LEIOMYOSARCOMA
     Dosage: UNK, CYCLIC

REACTIONS (1)
  - Haemolytic uraemic syndrome [Fatal]
